FAERS Safety Report 8181119-9 (Version None)
Quarter: 2012Q1

REPORT INFORMATION
  Report Type: 
  Country: None (occurrence: None)
  Receive Date: 20120126
  Receipt Date: 20111006
  Transmission Date: 20120608
  Serious: Yes (Death)
  Sender: FDA-Public Use
  Company Number: PHEH2011US06141

PATIENT
  Age: 67 Year
  Sex: Female

DRUGS (1)
  1. AFINITOR [Suspect]
     Indication: B-CELL LYMPHOMA
     Dosage: 5 MG, DAILY, ORAL
     Route: 048
     Dates: start: 20110614

REACTIONS (1)
  - DISEASE PROGRESSION [None]
